FAERS Safety Report 22973571 (Version 3)
Quarter: 2023Q4

REPORT INFORMATION
  Report Type: Spontaneous
  Country: CH (occurrence: CH)
  Receive Date: 20230922
  Receipt Date: 20231013
  Transmission Date: 20240110
  Serious: Yes (Hospitalization, Other)
  Sender: FDA-Public Use
  Company Number: CH-TAKEDA-2023TUS090914

PATIENT
  Age: 62 Year
  Sex: Male
  Weight: 72 kg

DRUGS (16)
  1. PANTOZOL [Suspect]
     Active Substance: PANTOPRAZOLE SODIUM
     Dosage: 40 MG, 1X/DAY
     Route: 048
  2. CHOLECALCIFEROL [Concomitant]
     Active Substance: CHOLECALCIFEROL
     Dosage: 0.2 MILLILITER, QD
     Route: 048
  3. NEBIVOLOL AXAPHARM [Concomitant]
     Dosage: UNK UNK, QD
     Route: 048
  4. CLOPIDOGREL SANDOZ [CLOPIDOGREL] [Concomitant]
     Dosage: 75 MILLIGRAM, QD
     Route: 048
     Dates: start: 20230831
  5. MORPHINE HYDROCHLORIDE [Concomitant]
     Active Substance: MORPHINE HYDROCHLORIDE
     Dosage: UNK
     Route: 040
     Dates: start: 20230830, end: 20230830
  6. MORPHINE HYDROCHLORIDE [Concomitant]
     Active Substance: MORPHINE HYDROCHLORIDE
     Dosage: 2 MILLIGRAM, QD
     Route: 040
     Dates: start: 20230830, end: 20230830
  7. ATORVASTATIN [Concomitant]
     Active Substance: ATORVASTATIN
     Dosage: 40 MILLIGRAM, QD
     Dates: start: 202305
  8. SODIUM PERCHLORATE [Concomitant]
     Active Substance: SODIUM PERCHLORATE
     Dosage: 15 GTT DROPS, TID
     Dates: start: 20230830
  9. MOXONIDINE [Concomitant]
     Active Substance: MOXONIDINE
     Dosage: 0.2 MILLIGRAM, BID
     Route: 048
  10. AMLODIPINE BESYLATE [Concomitant]
     Active Substance: AMLODIPINE BESYLATE
     Dosage: 5 MILLIGRAM, BID
  11. VALSARTAN [Concomitant]
     Active Substance: VALSARTAN
     Dosage: 160 MILLIGRAM, BID
     Dates: start: 20230802
  12. ASPIRIN [Concomitant]
     Active Substance: ASPIRIN
     Dosage: 100 MILLIGRAM, QD
  13. METAMIZOLE [Concomitant]
     Active Substance: METAMIZOLE
     Dosage: 1 GRAM, QD
     Dates: start: 20230830, end: 20230830
  14. ONDANSETRON TEVA [ONDANSETRON] [Concomitant]
     Dosage: 4 MILLIGRAM, QD
     Dates: start: 20230830, end: 20230830
  15. ACETAMINOPHEN [Concomitant]
     Active Substance: ACETAMINOPHEN
     Indication: Abdominal pain
     Dosage: 2 GRAM
     Route: 040
     Dates: start: 20230830, end: 20230830
  16. ACETAMINOPHEN [Concomitant]
     Active Substance: ACETAMINOPHEN
     Indication: Groin pain

REACTIONS (5)
  - Transaminases increased [Recovering/Resolving]
  - Gamma-glutamyltransferase increased [Recovering/Resolving]
  - Hepatic cirrhosis [Unknown]
  - Blood creatinine increased [Unknown]
  - Glomerular filtration rate decreased [Unknown]

NARRATIVE: CASE EVENT DATE: 20230831
